FAERS Safety Report 18341475 (Version 1)
Quarter: 2020Q4

REPORT INFORMATION
  Report Type: Spontaneous
  Country: US (occurrence: US)
  Receive Date: 20201004
  Receipt Date: 20201004
  Transmission Date: 20210113
  Serious: Yes (Other)
  Sender: FDA-Public Use
  Company Number: US-SA-2020SA186942

PATIENT

DRUGS (3)
  1. LANTUS [Suspect]
     Active Substance: INSULIN GLARGINE
     Indication: TYPE 1 DIABETES MELLITUS
     Dosage: 25 IU, QD (IN THE MORNING)
     Route: 065
  2. LANTUS [Suspect]
     Active Substance: INSULIN GLARGINE
     Dosage: 25 UNITS IN THE MORNING AND 15 UNITS IN THE EVENING
     Route: 065
  3. INSULIN [Concomitant]
     Active Substance: INSULIN NOS
     Dosage: UNK UNK, TID

REACTIONS (4)
  - Wrong technique in device usage process [Unknown]
  - Visual impairment [Unknown]
  - Inappropriate schedule of product administration [Unknown]
  - Cataract [Unknown]
